FAERS Safety Report 13273049 (Version 2)
Quarter: 2017Q2

REPORT INFORMATION
  Report Type: Spontaneous
  Country: AU (occurrence: AU)
  Receive Date: 20170227
  Receipt Date: 20170517
  Transmission Date: 20170830
  Serious: Yes (Other)
  Sender: FDA-Public Use
  Company Number: AU-PFIZER INC-2017077914

PATIENT
  Age: 99 Year
  Sex: Female

DRUGS (4)
  1. REPATHA [Suspect]
     Active Substance: EVOLOCUMAB
     Indication: TYPE IIA HYPERLIPIDAEMIA
     Dosage: 140 MG, UNK (FORTNIGHTLY)
     Route: 058
     Dates: start: 20160526
  2. CRESTOR [Suspect]
     Active Substance: ROSUVASTATIN CALCIUM
     Dosage: UNK
  3. LIPITOR [Suspect]
     Active Substance: ATORVASTATIN CALCIUM
     Dosage: UNK
  4. INSULIN [Concomitant]
     Active Substance: INSULIN NOS
     Dosage: UNK

REACTIONS (6)
  - Hypertension [Unknown]
  - Hyperhidrosis [Unknown]
  - Glycosylated haemoglobin increased [Unknown]
  - Tremor [Unknown]
  - Blood thyroid stimulating hormone increased [Unknown]
  - Hypoglycaemia [Unknown]

NARRATIVE: CASE EVENT DATE: 2016
